FAERS Safety Report 9436201 (Version 1)
Quarter: 2013Q3

REPORT INFORMATION
  Report Type: Report from Study
  Country: TH (occurrence: TH)
  Receive Date: 20130801
  Receipt Date: 20130801
  Transmission Date: 20140515
  Serious: Yes (Death, Other)
  Sender: FDA-Public Use
  Company Number: TH-UCBSA-093799

PATIENT
  Age: 29 Year
  Sex: Female

DRUGS (9)
  1. LEVETIRACETAM [Suspect]
     Indication: STATUS EPILEPTICUS
     Dosage: 1000 MG LOADING DOSE
     Route: 042
  2. LEVETIRACETAM [Suspect]
     Indication: STATUS EPILEPTICUS
     Dosage: 1000 MG MAINTENANCE DOSE
     Route: 042
  3. DIAZEPAM [Concomitant]
  4. MEROPENEM [Concomitant]
  5. LEVOFLOXACIN [Concomitant]
  6. AMIKACIN [Concomitant]
  7. CEFTAZIDIUM [Concomitant]
  8. CO-TRIMOXAZOLE [Concomitant]
  9. FLUCONAZOLE [Concomitant]

REACTIONS (2)
  - Sepsis [Fatal]
  - Multi-organ failure [Fatal]
